FAERS Safety Report 20949429 (Version 1)
Quarter: 2022Q2

REPORT INFORMATION
  Report Type: Report from Study
  Country: CR (occurrence: CR)
  Receive Date: 20220613
  Receipt Date: 20220613
  Transmission Date: 20220721
  Serious: Yes (Other)
  Sender: FDA-Public Use
  Company Number: CR-NOVARTISPH-NVSC2022CR115571

PATIENT
  Age: 66 Year
  Sex: Female

DRUGS (2)
  1. HYDROCHLOROTHIAZIDE\VALSARTAN [Suspect]
     Active Substance: HYDROCHLOROTHIAZIDE\VALSARTAN
     Indication: Product used for unknown indication
     Dosage: UNK, (STARTED 7 YEARS AGO AND STOPPED 15 DAYS AGO)
     Route: 065
  2. DIOVAN [Suspect]
     Active Substance: VALSARTAN
     Indication: Product used for unknown indication
     Dosage: 2 DOSAGE FORM, QD (STARTED 15 DAYS AGO, ONE TABLET IN THE MORNING AND ONE AT NIGHT)
     Route: 065

REACTIONS (4)
  - Renal disorder [Unknown]
  - COVID-19 [Unknown]
  - Ill-defined disorder [Unknown]
  - Incorrect dose administered [Unknown]

NARRATIVE: CASE EVENT DATE: 20220217
